FAERS Safety Report 12779576 (Version 1)
Quarter: 2016Q3

REPORT INFORMATION
  Report Type: Spontaneous
  Country: FR (occurrence: FR)
  Receive Date: 20160926
  Receipt Date: 20160926
  Transmission Date: 20161109
  Serious: Yes (Other)
  Sender: FDA-Public Use
  Company Number: FR-ORION CORPORATION ORION PHARMA-TREX2016-0125

PATIENT
  Sex: Female

DRUGS (6)
  1. IMETH [Suspect]
     Active Substance: METHOTREXATE SODIUM
     Indication: ANKYLOSING SPONDYLITIS
     Route: 065
  2. CIMZIA [Concomitant]
     Active Substance: CERTOLIZUMAB PEGOL
     Route: 065
  3. CYPROTERONE [Concomitant]
     Active Substance: CYPROTERONE
     Route: 065
  4. DAFALGAN CODEINE [Concomitant]
     Active Substance: ACETAMINOPHEN\CODEINE PHOSPHATE
     Route: 065
  5. SPECIAFOLDINE [Suspect]
     Active Substance: FOLIC ACID
     Route: 065
  6. ARCOXIA [Concomitant]
     Active Substance: ETORICOXIB
     Indication: PAIN
     Dosage: STRENGTH: 60 MG
     Route: 065

REACTIONS (6)
  - Peptic ulcer [Unknown]
  - Abdominal pain upper [Unknown]
  - Product use issue [Unknown]
  - Limb discomfort [Unknown]
  - Fatigue [Unknown]
  - Erythema [Unknown]
